FAERS Safety Report 5585290-4 (Version None)
Quarter: 2008Q1

REPORT INFORMATION
  Report Type: 
  Country: None (occurrence: None)
  Receive Date: 20080104
  Receipt Date: 20080104
  Transmission Date: 20080703
  Serious: Yes (Hospitalization)
  Sender: FDA-Public Use
  Company Number: None

PATIENT
  Sex: Female
  Weight: 54.1 kg

DRUGS (4)
  1. FLUOROURACIL [Suspect]
     Dosage: 3472 MG
  2. BEVACIZUMAB (RHUMAB VEGF) [Suspect]
     Dosage: 272 MG
  3. LEUCOVORIN CALCIUM [Suspect]
     Dosage: 620 MG
  4. ELOXATIN [Suspect]
     Dosage: 101 MG

REACTIONS (2)
  - CARDIAC FAILURE CONGESTIVE [None]
  - TACHYCARDIA [None]
